FAERS Safety Report 13388747 (Version 1)
Quarter: 2017Q1

REPORT INFORMATION
  Report Type: Spontaneous
  Country: US (occurrence: US)
  Receive Date: 20170330
  Receipt Date: 20170330
  Transmission Date: 20170429
  Serious: Yes (Other)
  Sender: FDA-Public Use
  Company Number: US-INSYS THERAPEUTICS, INC-INS201703-000216

PATIENT
  Age: 46 Year
  Sex: Female

DRUGS (6)
  1. SUBSYS [Suspect]
     Active Substance: FENTANYL
     Indication: PRODUCT USED FOR UNKNOWN INDICATION
     Route: 060
  2. BUTRANS [Concomitant]
     Active Substance: BUPRENORPHINE
  3. SUBSYS [Suspect]
     Active Substance: FENTANYL
     Route: 060
  4. HYDROCODONE [Concomitant]
     Active Substance: HYDROCODONE
  5. OXYCODONE [Concomitant]
     Active Substance: OXYCODONE
  6. METHADONE [Concomitant]
     Active Substance: METHADONE HYDROCHLORIDE

REACTIONS (3)
  - Dyspnoea [Recovered/Resolved]
  - Loss of consciousness [Recovered/Resolved]
  - Apnoea [Recovered/Resolved]
